FAERS Safety Report 10261355 (Version 1)
Quarter: 2014Q2

REPORT INFORMATION
  Report Type: Spontaneous
  Country: US (occurrence: US)
  Receive Date: 20140626
  Receipt Date: 20140626
  Transmission Date: 20141212
  Serious: Yes (Hospitalization)
  Sender: FDA-Public Use
  Company Number: US-BAYER-2014-095257

PATIENT
  Age: 48 Year
  Sex: Female
  Weight: 85.26 kg

DRUGS (4)
  1. YASMIN [Suspect]
  2. NAPROSYN [Concomitant]
     Dosage: UNK
     Route: 048
     Dates: start: 20040422
  3. MOTRIN [Concomitant]
     Dosage: UNK
     Route: 048
     Dates: start: 20040422
  4. ADVIL [Concomitant]
     Dosage: UNK
     Route: 048
     Dates: start: 20040422

REACTIONS (1)
  - Pulmonary embolism [None]
